FAERS Safety Report 13715138 (Version 1)
Quarter: 2017Q3

REPORT INFORMATION
  Report Type: Report from Study
  Country: BR (occurrence: BR)
  Receive Date: 20170704
  Receipt Date: 20170704
  Transmission Date: 20171127
  Serious: Yes (Hospitalization)
  Sender: FDA-Public Use
  Company Number: BR-UCBSA-2017026054

PATIENT
  Age: 17 Year
  Sex: Male
  Weight: 75 kg

DRUGS (8)
  1. LACOSAMIDE. [Suspect]
     Active Substance: LACOSAMIDE
     Indication: EPILEPSY
     Dosage: 1 TABLET OF 100 MG IN THE MORNING, AND 1 TABLET OF 150 MG IN THE EVENING (250 MG DAILY DOSE)
     Route: 048
     Dates: start: 201704, end: 2017
  2. OLANZAPINE. [Concomitant]
     Active Substance: OLANZAPINE
     Indication: PSYCHOTIC DISORDER
     Dosage: 20 MG, ONCE DAILY (QD)
     Route: 048
     Dates: start: 2007
  3. KEPPRA [Suspect]
     Active Substance: LEVETIRACETAM
     Indication: EPILEPSY
     Dosage: 1000 MG, 3X/DAY (TID) (250 MG 4 TAB)
     Route: 048
     Dates: start: 2008
  4. LACOSAMIDE. [Suspect]
     Active Substance: LACOSAMIDE
     Dosage: (100 MG IN MORNING AND BREAKING THE TABLET IN HALF AND 1 TABLET AND A HALF OF 100MG AT NIGHT)
     Dates: start: 201706
  5. LAMOTRIGINE. [Concomitant]
     Active Substance: LAMOTRIGINE
     Indication: EPILEPSY
     Dosage: (100MG MORNING, 150MG AFTERNOON, 200MG NIGHT)
     Route: 048
     Dates: start: 201612
  6. HIDANTAL [Concomitant]
     Active Substance: PHENYTOIN SODIUM
     Indication: EPILEPSY
     Dosage: (100MG MORNING, 50MG AFTERNOON, 100MG NIGHT)
     Route: 048
     Dates: start: 201612
  7. ATENSINA [Concomitant]
     Active Substance: CLONIDINE
     Indication: PSYCHOTIC DISORDER
     Dosage: 0.05 MG, ONCE DAILY (QD)
     Route: 048
     Dates: start: 2007
  8. URBANIL [Concomitant]
     Active Substance: CLOBAZAM
     Indication: EPILEPSY
     Dosage: (30MG MORNING, 20MG AFTERNOON, 30MG NIGHT)
     Route: 048
     Dates: start: 2005

REACTIONS (4)
  - Intentional product misuse [Unknown]
  - Seizure [Recovered/Resolved]
  - Inappropriate schedule of drug administration [Unknown]
  - Off label use [Unknown]

NARRATIVE: CASE EVENT DATE: 2008
